FAERS Safety Report 5835022-7 (Version None)
Quarter: 2008Q3

REPORT INFORMATION
  Report Type: 
  Country: None (occurrence: None)
  Receive Date: 20080804
  Receipt Date: 20080721
  Transmission Date: 20090109
  Serious: Yes (Other)
  Sender: FDA-Public Use
  Company Number: 2008S1000220

PATIENT
  Sex: Male

DRUGS (2)
  1. ACITRETIN [Suspect]
     Indication: PSORIASIS
     Dosage: ; PO, ; PO
     Route: 048
     Dates: start: 20020101, end: 20050101
  2. ACITRETIN [Suspect]
     Indication: PSORIASIS
     Dosage: ; PO, ; PO
     Route: 048
     Dates: end: 20060101

REACTIONS (2)
  - BLOOD TRIGLYCERIDES INCREASED [None]
  - NEPHROLITHIASIS [None]
